FAERS Safety Report 25422457 (Version 2)
Quarter: 2025Q2

REPORT INFORMATION
  Report Type: Spontaneous
  Country: US (occurrence: US)
  Receive Date: 20250611
  Receipt Date: 20250613
  Transmission Date: 20250716
  Serious: Yes (Hospitalization)
  Sender: MYLAN
  Company Number: US-MYLANLABS-2025M1048851

PATIENT
  Age: 5 Year
  Sex: Female

DRUGS (12)
  1. FENTANYL [Suspect]
     Active Substance: FENTANYL
     Indication: General anaesthesia
  2. FENTANYL [Suspect]
     Active Substance: FENTANYL
     Route: 042
  3. FENTANYL [Suspect]
     Active Substance: FENTANYL
     Route: 042
  4. FENTANYL [Suspect]
     Active Substance: FENTANYL
  5. REMIFENTANIL [Suspect]
     Active Substance: REMIFENTANIL
     Indication: General anaesthesia
  6. REMIFENTANIL [Suspect]
     Active Substance: REMIFENTANIL
     Route: 042
  7. REMIFENTANIL [Suspect]
     Active Substance: REMIFENTANIL
     Route: 042
  8. REMIFENTANIL [Suspect]
     Active Substance: REMIFENTANIL
  9. PROPOFOL [Concomitant]
     Active Substance: PROPOFOL
     Indication: General anaesthesia
  10. PROPOFOL [Concomitant]
     Active Substance: PROPOFOL
     Route: 042
  11. PROPOFOL [Concomitant]
     Active Substance: PROPOFOL
     Route: 042
  12. PROPOFOL [Concomitant]
     Active Substance: PROPOFOL

REACTIONS (1)
  - Transcranial electrical motor evoked potential monitoring abnormal [Recovered/Resolved]
